FAERS Safety Report 25941765 (Version 1)
Quarter: 2025Q4

REPORT INFORMATION
  Report Type: Spontaneous
  Country: GB (occurrence: GB)
  Receive Date: 20251020
  Receipt Date: 20251020
  Transmission Date: 20260118
  Serious: Yes (Other)
  Sender: ELI LILLY AND COMPANY
  Company Number: None

PATIENT
  Age: 53 Year
  Sex: Female
  Weight: 75 kg

DRUGS (2)
  1. MOUNJARO [Suspect]
     Active Substance: TIRZEPATIDE
     Indication: Weight control
     Dosage: UNK, UNKNOWN
     Route: 065
     Dates: start: 20250903, end: 20251002
  2. MOUNJARO [Suspect]
     Active Substance: TIRZEPATIDE
     Indication: Weight control
     Dosage: UNK, UNKNOWN
     Route: 065
     Dates: start: 20250903, end: 20251002

REACTIONS (3)
  - Tremor [Recovering/Resolving]
  - Muscle spasms [Unknown]
  - Paraesthesia [Unknown]

NARRATIVE: CASE EVENT DATE: 20251003
